FAERS Safety Report 5384247-6 (Version None)
Quarter: 2007Q3

REPORT INFORMATION
  Report Type: 
  Country: None (occurrence: None)
  Receive Date: 20070711
  Receipt Date: 20070709
  Transmission Date: 20080115
  Serious: Yes (Hospitalization)
  Sender: FDA-Public Use
  Company Number: FR-BRISTOL-MYERS SQUIBB COMPANY-13823372

PATIENT
  Age: 60 Year
  Sex: Male

DRUGS (6)
  1. ELISOR TABS [Suspect]
     Route: 048
     Dates: end: 20070527
  2. CYCLOPHOSPHAMIDE [Suspect]
     Indication: LEUKAEMIA
     Dates: start: 20070425, end: 20070430
  3. PLAVIX [Suspect]
     Route: 048
  4. FLUDARA [Suspect]
     Indication: LEUKAEMIA
     Dates: start: 20070425, end: 20070430
  5. ZELITREX [Suspect]
     Indication: PROPHYLAXIS
     Route: 048
     Dates: start: 20070425, end: 20070527
  6. BACTRIM [Suspect]
     Indication: PROPHYLAXIS
     Route: 048
     Dates: start: 20070425, end: 20070522

REACTIONS (3)
  - PHOTOSENSITIVITY REACTION [None]
  - RASH ERYTHEMATOUS [None]
  - TOXIC SKIN ERUPTION [None]
